FAERS Safety Report 13566865 (Version 2)
Quarter: 2017Q3

REPORT INFORMATION
  Report Type: Spontaneous
  Country: US (occurrence: US)
  Receive Date: 20170522
  Receipt Date: 20170717
  Transmission Date: 20171127
  Serious: Yes (Life-Threatening, Hospitalization)
  Sender: FDA-Public Use
  Company Number: US-ACCORD-051674

PATIENT
  Age: 40 Year
  Sex: Female

DRUGS (2)
  1. QUETIAPINE/QUETIAPINE FUMARATE [Concomitant]
     Indication: PSYCHOTIC DISORDER
  2. CLOZAPINE. [Suspect]
     Active Substance: CLOZAPINE
     Indication: PSYCHOTIC DISORDER
     Dosage: STARTED AT 25 MG ONCE DAILY AND TITRATED TO 150 MG TWICE DAILY

REACTIONS (1)
  - Atrial flutter [Recovered/Resolved]
